FAERS Safety Report 20741682 (Version 3)
Quarter: 2022Q3

REPORT INFORMATION
  Report Type: Report from Study
  Country: DE (occurrence: DE)
  Receive Date: 20220422
  Receipt Date: 20220809
  Transmission Date: 20221027
  Serious: Yes (Hospitalization)
  Sender: FDA-Public Use
  Company Number: DE-ABBVIE-22K-062-4367040-00

PATIENT
  Age: 59 Year
  Sex: Female
  Weight: 106 kg

DRUGS (1)
  1. RINVOQ [Suspect]
     Active Substance: UPADACITINIB
     Indication: Rheumatoid arthritis
     Route: 048
     Dates: start: 202007

REACTIONS (6)
  - Obesity [Recovered/Resolved]
  - Pelvic abscess [Recovered/Resolved]
  - Postoperative abscess [Recovered/Resolved]
  - Gastrectomy [Recovered/Resolved]
  - Impaired healing [Recovered/Resolved]
  - Laparotomy [Recovered/Resolved]

NARRATIVE: CASE EVENT DATE: 20220123
